FAERS Safety Report 9678430 (Version 2)
Quarter: 2013Q4

REPORT INFORMATION
  Report Type: Spontaneous
  Country: IT (occurrence: None)
  Receive Date: 20131106
  Receipt Date: 20131120
  Transmission Date: 20140711
  Serious: Yes (Hospitalization)
  Sender: FDA-Public Use
  Company Number: AUR-APL-2013-09237

PATIENT
  Age: 71 Year
  Sex: Male

DRUGS (2)
  1. GABAPENTIN [Suspect]
     Indication: DIABETIC NEUROPATHY
     Route: 048
     Dates: start: 20130924
  2. PLAVIX (CLOPIDOGREL BISULFATE) [Concomitant]

REACTIONS (3)
  - Abdominal pain upper [None]
  - Aspartate aminotransferase increased [None]
  - Alanine aminotransferase increased [None]
